FAERS Safety Report 9250658 (Version 1)
Quarter: 2013Q1

REPORT INFORMATION
  Report Type: Spontaneous
  Country: US (occurrence: None)
  Receive Date: 20130305
  Receipt Date: 20130305
  Transmission Date: 20140127
  Serious: Yes (Other)
  Sender: FDA-Public Use
  Company Number: 163-21880-12040380

PATIENT
  Age: 61 Year
  Sex: Female

DRUGS (1)
  1. REVLIMID [Suspect]
     Dosage: 25 MG, DAILY FOR 21 DAYS ON , 7
     Route: 048
     Dates: start: 20120325, end: 20120404

REACTIONS (1)
  - Supraventricular tachycardia [None]
